FAERS Safety Report 24180036 (Version 1)
Quarter: 2024Q3

REPORT INFORMATION
  Report Type: Spontaneous
  Country: US (occurrence: US)
  Receive Date: 20240806
  Receipt Date: 20240806
  Transmission Date: 20241017
  Serious: Yes (Life-Threatening, Hospitalization, Other)
  Sender: FRESENIUS KABI
  Company Number: US-FreseniusKabi-FK202412107

PATIENT
  Age: 33 Year
  Sex: Female

DRUGS (4)
  1. PACLITAXEL [Suspect]
     Active Substance: PACLITAXEL
     Indication: Ovarian epithelial cancer
     Dosage: 1ST CYCLE?FORM OF ADMIN: INFUSION
  2. CARBOPLATIN [Suspect]
     Active Substance: CARBOPLATIN
     Indication: Ovarian epithelial cancer
     Dosage: FROM OF ADMIN: INFUSION?RECEIVED 5 CYCLES
  3. DOXORUBICIN HYDROCHLORIDE [Suspect]
     Active Substance: DOXORUBICIN HYDROCHLORIDE
     Indication: Ovarian epithelial cancer
     Dosage: 5 CYCLE
  4. NIRAPARIB [Concomitant]
     Active Substance: NIRAPARIB
     Indication: Ovarian epithelial cancer
     Dosage: FOR TEN MONTHS

REACTIONS (2)
  - Anaphylactic reaction [Recovered/Resolved]
  - Haematotoxicity [Unknown]
